FAERS Safety Report 4911786-1 (Version None)
Quarter: 2006Q1

REPORT INFORMATION
  Report Type: 
  Country: None (occurrence: None)
  Receive Date: 20060213
  Receipt Date: 20060213
  Transmission Date: 20060701
  Serious: Yes (Hospitalization)
  Sender: FDA-Public Use
  Company Number: None

PATIENT
  Sex: Male
  Weight: 73 kg

DRUGS (13)
  1. RAPAMYCIN [Suspect]
  2. LEXAPRO [Concomitant]
  3. LASIX [Concomitant]
  4. PERCOCET [Concomitant]
  5. TOPROL [Concomitant]
  6. OXYCODONE [Concomitant]
  7. FLEETSENEMA [Concomitant]
  8. LISINOPRIL [Concomitant]
  9. DULCOLUX [Concomitant]
  10. MAGCITRATE [Concomitant]
  11. ASPIRIN [Concomitant]
  12. ZOFRA [Concomitant]
  13. MEGACE [Concomitant]

REACTIONS (1)
  - PULMONARY EMBOLISM [None]
